FAERS Safety Report 5363381-0 (Version None)
Quarter: 2007Q2

REPORT INFORMATION
  Report Type: 
  Country: None (occurrence: None)
  Receive Date: 20070620
  Receipt Date: 20070606
  Transmission Date: 20071010
  Serious: Yes (Hospitalization)
  Sender: FDA-Public Use
  Company Number: FR-ELI_LILLY_AND_COMPANY-FR200706001340

PATIENT
  Age: 76 Year
  Sex: Female

DRUGS (6)
  1. FORTEO [Suspect]
     Indication: OSTEOPOROSIS
     Dosage: 20 UG, DAILY (1/D)
     Route: 058
     Dates: start: 20070420, end: 20070516
  2. TENORDATE [Concomitant]
  3. SERMION [Concomitant]
  4. ALDALIX [Concomitant]
  5. ASPIRIN [Concomitant]
  6. LIPANTHYL [Concomitant]

REACTIONS (1)
  - CARDIAC DISORDER [None]
